FAERS Safety Report 12084435 (Version 1)
Quarter: 2016Q1

REPORT INFORMATION
  Report Type: Spontaneous
  Country: BR (occurrence: BR)
  Receive Date: 20160217
  Receipt Date: 20160217
  Transmission Date: 20160526
  Serious: Yes (Other)
  Sender: FDA-Public Use
  Company Number: BR-JNJFOC-20160211084

PATIENT
  Age: 43 Year
  Sex: Female
  Weight: 67 kg

DRUGS (2)
  1. REMICADE [Suspect]
     Active Substance: INFLIXIMAB
     Indication: PRODUCT USED FOR UNKNOWN INDICATION
     Route: 042
     Dates: start: 201512
  2. REMICADE [Suspect]
     Active Substance: INFLIXIMAB
     Indication: PRODUCT USED FOR UNKNOWN INDICATION
     Dosage: 4 DOSAGE FORM
     Route: 042

REACTIONS (7)
  - Condition aggravated [Unknown]
  - Decreased appetite [Unknown]
  - Weight decreased [Unknown]
  - Haematochezia [Unknown]
  - Abdominal pain [Unknown]
  - Inadequate diet [Unknown]
  - Vomiting [Unknown]

NARRATIVE: CASE EVENT DATE: 20160110
